FAERS Safety Report 9524809 (Version 1)
Quarter: 2013Q1

REPORT INFORMATION
  Report Type: Spontaneous
  Country: US (occurrence: None)
  Receive Date: 20130305
  Receipt Date: 20130305
  Transmission Date: 20140127
  Serious: Yes (Hospitalization)
  Sender: FDA-Public Use
  Company Number: 163-21880-12033386

PATIENT
  Age: 57 Year
  Sex: Female

DRUGS (3)
  1. REVLIMID [Suspect]
     Indication: MYELODYSPLASTIC SYNDROME
     Route: 048
     Dates: start: 20100913
  2. FLUOXETINE [Concomitant]
  3. MVI + CALCIUM (MULTIVITAMINS W/MINERALS) [Concomitant]

REACTIONS (2)
  - Pneumonia [None]
  - Full blood count decreased [None]
